APPROVED DRUG PRODUCT: COLISTIMETHATE SODIUM
Active Ingredient: COLISTIMETHATE SODIUM
Strength: EQ 150MG BASE/VIAL
Dosage Form/Route: INJECTABLE;INJECTION
Application: A064216 | Product #001
Applicant: PHARMOBEDIENT CONSULTING LLC
Approved: Feb 26, 1999 | RLD: No | RS: No | Type: DISCN